FAERS Safety Report 8403461-6 (Version None)
Quarter: 2012Q2

REPORT INFORMATION
  Report Type: 
  Country: None (occurrence: None)
  Receive Date: 20120601
  Receipt Date: 20120523
  Transmission Date: 20120825
  Serious: Yes (Hospitalization, Other)
  Sender: FDA-Public Use
  Company Number: US-ELI_LILLY_AND_COMPANY-US201205008947

PATIENT
  Sex: Female

DRUGS (1)
  1. FORTEO [Suspect]
     Dosage: 20 UG, QD
     Route: 058
     Dates: start: 20100601

REACTIONS (7)
  - RENAL CYST [None]
  - FALL [None]
  - LOSS OF CONSCIOUSNESS [None]
  - PNEUMONIA [None]
  - CONCUSSION [None]
  - VOMITING [None]
  - SYNCOPE [None]
